FAERS Safety Report 17335926 (Version 2)
Quarter: 2020Q1

REPORT INFORMATION
  Report Type: Spontaneous
  Country: US (occurrence: US)
  Receive Date: 20200128
  Receipt Date: 20200212
  Transmission Date: 20200409
  Serious: Yes (Hospitalization)
  Sender: FDA-Public Use
  Company Number: US-TEVA-2020-US-1175292

PATIENT
  Age: 62 Year
  Sex: Female

DRUGS (1)
  1. ATORVASTATIN [Suspect]
     Active Substance: ATORVASTATIN
     Indication: HYPERLIPIDAEMIA
     Dosage: 80 MILLIGRAM DAILY; FOR THE PAST FIVE YEARS WITH NO RECENT DOSE CHANGE
     Route: 065

REACTIONS (3)
  - Dysphagia [Recovering/Resolving]
  - Fall [Unknown]
  - Immune-mediated myositis [Recovering/Resolving]
